FAERS Safety Report 5377456-3 (Version None)
Quarter: 2007Q3

REPORT INFORMATION
  Report Type: 
  Country: None (occurrence: None)
  Receive Date: 20070703
  Receipt Date: 20070625
  Transmission Date: 20080115
  Serious: Yes (Death)
  Sender: FDA-Public Use
  Company Number: FR-JNJFOC-20070505367

PATIENT
  Sex: Male

DRUGS (3)
  1. RISPERDAL CONSTA [Suspect]
     Indication: SCHIZOPHRENIA
     Route: 030
  2. NOZINAN [Concomitant]
  3. DEPAKOTE [Concomitant]

REACTIONS (2)
  - ASPIRATION [None]
  - ILL-DEFINED DISORDER [None]
